FAERS Safety Report 8612854-3 (Version None)
Quarter: 2012Q3

REPORT INFORMATION
  Report Type: 
  Country: None (occurrence: None)
  Receive Date: 20120822
  Receipt Date: 20111010
  Transmission Date: 20120928
  Serious: No
  Sender: FDA-Public Use
  Company Number: US-ASTRAZENECA-2011SE33669

PATIENT
  Age: 68 Year
  Sex: Female

DRUGS (8)
  1. CLONAZEPAM [Concomitant]
  2. WARFARIN SODIUM [Concomitant]
  3. LEVOTHYROXINE SODIUM [Concomitant]
  4. VENLAFAXINE [Concomitant]
  5. DOXEPIN [Concomitant]
     Dosage: 150 CAP
  6. DETROL [Concomitant]
  7. SYMBICORT [Suspect]
     Route: 055
  8. VERAPAMIL [Concomitant]

REACTIONS (1)
  - DYSPNOEA [None]
